FAERS Safety Report 10076352 (Version 1)
Quarter: 2014Q2

REPORT INFORMATION
  Report Type: Spontaneous
  Country: US (occurrence: None)
  Receive Date: 20140410
  Receipt Date: 20140410
  Transmission Date: 20141212
  Serious: Yes (Hospitalization)
  Sender: FDA-Public Use
  Company Number: UTC-046735

PATIENT
  Age: 88 Year
  Sex: Female
  Weight: 56 kg

DRUGS (2)
  1. REMODULIN (5 MILLIGRAM/MILLILITERS, INJECTION FOR INFUSION) (TREPROSTINIL SODIUM) [Suspect]
     Indication: COR PULMONALE CHRONIC
     Dosage: 0.066 UG/KG, 1 IN 1 MIN
     Route: 041
     Dates: start: 20030814
  2. COUMADIN [Concomitant]

REACTIONS (3)
  - Device leakage [None]
  - Therapy change [None]
  - Incorrect dose administered [None]
